FAERS Safety Report 13876202 (Version 1)
Quarter: 2017Q3

REPORT INFORMATION
  Report Type: Spontaneous
  Country: FR (occurrence: FR)
  Receive Date: 20170817
  Receipt Date: 20170817
  Transmission Date: 20171127
  Serious: Yes (Hospitalization)
  Sender: FDA-Public Use
  Company Number: FR-ROCHE-1977185

PATIENT
  Age: 69 Year
  Sex: Male

DRUGS (17)
  1. ZYLORIC [Concomitant]
     Active Substance: ALLOPURINOL
     Dosage: 300 MG
     Route: 048
  2. MABTHERA [Suspect]
     Active Substance: RITUXIMAB
     Indication: B-CELL LYMPHOMA
     Route: 041
     Dates: start: 20170504, end: 20170525
  3. TAHOR [Concomitant]
     Active Substance: ATORVASTATIN CALCIUM
     Dosage: 10 MG
     Route: 048
  4. ZELITREX [Concomitant]
     Active Substance: VALACYCLOVIR HYDROCHLORIDE
     Dosage: 500 MG
     Route: 048
  5. OXALIPLATIN ACCORD [Suspect]
     Active Substance: OXALIPLATIN
     Indication: B-CELL LYMPHOMA
     Route: 065
     Dates: start: 20170504, end: 20170524
  6. EUPRESSYL [Concomitant]
     Active Substance: URAPIDIL
     Dosage: 30 MG
     Route: 048
  7. KAYEXALATE [Concomitant]
     Active Substance: SODIUM POLYSTYRENE SULFONATE
     Route: 048
  8. IMOVANE [Concomitant]
     Active Substance: ZOPICLONE
     Route: 048
  9. MOPRAL [Concomitant]
     Active Substance: OMEPRAZOLE SODIUM
     Route: 048
  10. NEODEX (FRANCE) [Concomitant]
     Active Substance: DEXAMETHASONE ACETATE
     Dosage: 40 MG
     Route: 048
     Dates: start: 20170527, end: 20170528
  11. FOLIC ACID. [Concomitant]
     Active Substance: FOLIC ACID
     Route: 065
  12. GRANOCYTE [Concomitant]
     Active Substance: LENOGRASTIM
     Route: 057
     Dates: start: 20170530, end: 20170603
  13. CYTARABINE ACCORD [Suspect]
     Active Substance: CYTARABINE
     Indication: B-CELL LYMPHOMA
     Route: 041
     Dates: start: 20170504, end: 20170526
  14. PRIMPERAN [Concomitant]
     Active Substance: METOCLOPRAMIDE HYDROCHLORIDE
     Dosage: 10 MG
     Route: 048
  15. BISOPROLOL [Concomitant]
     Active Substance: BISOPROLOL
     Route: 048
  16. AMLOR [Concomitant]
     Active Substance: AMLODIPINE BESYLATE
     Route: 048
  17. BACTRIM [Concomitant]
     Active Substance: SULFAMETHOXAZOLE\TRIMETHOPRIM
     Route: 048

REACTIONS (1)
  - Guillain-Barre syndrome [Not Recovered/Not Resolved]

NARRATIVE: CASE EVENT DATE: 20170612
